FAERS Safety Report 6016489-0 (Version None)
Quarter: 2008Q4

REPORT INFORMATION
  Report Type: 
  Country: None (occurrence: None)
  Receive Date: 20081222
  Receipt Date: 20081208
  Transmission Date: 20090506
  Serious: Yes (Other)
  Sender: FDA-Public Use
  Company Number: GR-PFIZER INC-2008153074

PATIENT

DRUGS (4)
  1. LYRICA [Suspect]
     Indication: NEURALGIA
     Dosage: UNK
     Route: 048
     Dates: start: 20070101, end: 20080101
  2. ANTI-DIABETICS [Concomitant]
     Dosage: UNK
     Route: 048
  3. ANTIHYPERTENSIVES [Concomitant]
     Dosage: UNK
     Route: 048
  4. SERUMLIPIDREDUCING AGENTS [Concomitant]
     Dosage: UNK
     Route: 048

REACTIONS (1)
  - ALPHA 1 FOETOPROTEIN INCREASED [None]
